FAERS Safety Report 7314073-X (Version None)
Quarter: 2011Q1

REPORT INFORMATION
  Report Type: 
  Country: None (occurrence: None)
  Receive Date: 20110225
  Receipt Date: 20100601
  Transmission Date: 20110831
  Serious: No
  Sender: FDA-Public Use
  Company Number: US-MYLANLABS-2010S1007252

PATIENT
  Age: 78 Year
  Sex: Male

DRUGS (1)
  1. AMNESTEEM [Suspect]
     Indication: ROSACEA

REACTIONS (2)
  - ROSACEA [None]
  - DRUG INEFFECTIVE FOR UNAPPROVED INDICATION [None]
